FAERS Safety Report 6004118-1 (Version None)
Quarter: 2008Q4

REPORT INFORMATION
  Report Type: 
  Country: None (occurrence: None)
  Receive Date: 20081216
  Receipt Date: 20081212
  Transmission Date: 20090506
  Serious: Yes (Death)
  Sender: FDA-Public Use
  Company Number: CH-JNJFOC-20081203069

PATIENT
  Age: 80 Year
  Sex: Male

DRUGS (15)
  1. HALDOL [Suspect]
     Route: 065
  2. HALDOL [Suspect]
     Route: 065
  3. HALDOL [Suspect]
     Route: 065
  4. HALDOL [Suspect]
     Route: 065
  5. HALDOL [Suspect]
     Route: 065
  6. HALDOL [Suspect]
     Route: 065
  7. HALDOL [Suspect]
     Indication: DRUG USE FOR UNKNOWN INDICATION
     Route: 065
  8. SINTROM [Interacting]
     Indication: DRUG USE FOR UNKNOWN INDICATION
     Route: 048
  9. REOCEPHIN [Interacting]
     Indication: DRUG USE FOR UNKNOWN INDICATION
     Route: 042
  10. AVELOX [Interacting]
     Indication: DRUG USE FOR UNKNOWN INDICATION
     Route: 065
  11. SOLU-MEDROL [Concomitant]
     Route: 042
  12. DOSPIR [Concomitant]
     Route: 055
  13. ELTROXINE [Concomitant]
     Route: 065
  14. TEMESTA [Concomitant]
     Route: 065
  15. SERETIDE [Concomitant]
     Route: 065

REACTIONS (9)
  - ABDOMINAL MASS [None]
  - CONFUSIONAL STATE [None]
  - DRUG INTERACTION [None]
  - INTERNATIONAL NORMALISED RATIO INCREASED [None]
  - LIVER DISORDER [None]
  - OVERDOSE [None]
  - RENAL FAILURE ACUTE [None]
  - SOMNOLENCE [None]
  - TOXIC ENCEPHALOPATHY [None]
